FAERS Safety Report 16731946 (Version 2)
Quarter: 2019Q3

REPORT INFORMATION
  Report Type: Report from Study
  Country: CN (occurrence: CN)
  Receive Date: 20190822
  Receipt Date: 20190909
  Transmission Date: 20191005
  Serious: Yes (Hospitalization)
  Sender: FDA-Public Use
  Company Number: CN-TAKEDA-2019TUS048790

PATIENT
  Age: 24 Year
  Sex: Male

DRUGS (7)
  1. AZATHIOPRINE. [Concomitant]
     Active Substance: AZATHIOPRINE
     Indication: CROHN^S DISEASE
     Dosage: 100 MILLIGRAM, QD
     Route: 048
     Dates: start: 20160726, end: 20190624
  2. CIPROFLOXACIN HYDROCHLORIDE. [Concomitant]
     Active Substance: CIPROFLOXACIN HYDROCHLORIDE
     Indication: CROHN^S DISEASE
     Dosage: 0.5 GRAM, BID
     Route: 048
     Dates: start: 20190625, end: 20190705
  3. VEDOLIZUMAB [Suspect]
     Active Substance: VEDOLIZUMAB
     Indication: CROHN^S DISEASE
     Dosage: 250 MILLILITER
     Route: 042
     Dates: start: 20180419
  4. METHOTREXATE. [Concomitant]
     Active Substance: METHOTREXATE
     Indication: CROHN^S DISEASE
     Dosage: 10 MILLIGRAM, 1/WEEK
     Route: 058
     Dates: start: 20190625, end: 20190625
  5. METHOTREXATE. [Concomitant]
     Active Substance: METHOTREXATE
     Dosage: 20 MILLIGRAM, 1/WEEK
     Route: 058
     Dates: start: 20190701, end: 20190701
  6. MEDROL [Concomitant]
     Active Substance: METHYLPREDNISOLONE
     Indication: CROHN^S DISEASE
     Dosage: 32 MILLIGRAM, QD
     Route: 048
     Dates: start: 20190625, end: 20190705
  7. MEDROL [Concomitant]
     Active Substance: METHYLPREDNISOLONE
     Dosage: 28 MILLIGRAM, QD
     Route: 048
     Dates: start: 20190722, end: 20190729

REACTIONS (1)
  - Mumps [Recovered/Resolved]

NARRATIVE: CASE EVENT DATE: 20190706
